FAERS Safety Report 15287144 (Version 3)
Quarter: 2018Q4

REPORT INFORMATION
  Report Type: Report from Study
  Country: GB (occurrence: GB)
  Receive Date: 20180817
  Receipt Date: 20181016
  Transmission Date: 20190204
  Serious: Yes (Hospitalization, Other)
  Sender: FDA-Public Use
  Company Number: GB-ROCHE-2053535

PATIENT
  Age: 79 Year
  Sex: Female

DRUGS (1)
  1. ROACTEMRA [Suspect]
     Active Substance: TOCILIZUMAB
     Indication: RHEUMATOID ARTHRITIS
     Route: 058
     Dates: start: 20170912

REACTIONS (15)
  - Anxiety [Unknown]
  - Scar [Unknown]
  - Pain in extremity [Unknown]
  - Drug ineffective [Unknown]
  - Malaise [Unknown]
  - Back pain [Unknown]
  - Product storage error [Unknown]
  - Hysterectomy [Unknown]
  - Infection [Unknown]
  - Nasopharyngitis [Unknown]
  - Gangrene [Unknown]
  - Herpes virus infection [Unknown]
  - Intestinal gangrene [Unknown]
  - Urinary tract infection [Unknown]
  - Immunodeficiency [Unknown]
